FAERS Safety Report 9259503 (Version 4)
Quarter: 2013Q3

REPORT INFORMATION
  Report Type: Report from Study
  Country: US (occurrence: US)
  Receive Date: 20130428
  Receipt Date: 20130715
  Transmission Date: 20140515
  Serious: Yes (Other)
  Sender: FDA-Public Use
  Company Number: US-BRISTOL-MYERS SQUIBB COMPANY-18808733

PATIENT
  Age: 68 Year
  Sex: Male

DRUGS (5)
  1. SAXAGLIPTIN [Suspect]
     Indication: TYPE 2 DIABETES MELLITUS
     Dosage: INTERR 16JUN11, 1SEP11?RESTAR 1SEP11, 20OCT11?LAST DOSE:14MAR13
     Dates: start: 20110303
  2. ACTOS [Suspect]
     Indication: TYPE 2 DIABETES MELLITUS
     Dosage: STARTED: BEFORE RANDOMIZATION
  3. HUMULIN [Suspect]
     Indication: TYPE 2 DIABETES MELLITUS
     Dosage: STARTED: BEFORE RANDOMIZATION. 1DF: 42IU/UNITS
  4. NOVOLIN [Suspect]
     Indication: TYPE 2 DIABETES MELLITUS
     Dosage: STARTED: BEFORE RANDOMIZATION. 1DF:14IU/UNITS
  5. ASPIRIN [Concomitant]
     Dosage: UNK-04JAN2012:325MG?04OCT2012-ONG:81MG

REACTIONS (1)
  - Blood bilirubin increased [Recovered/Resolved]
